FAERS Safety Report 10074439 (Version 1)
Quarter: 2014Q2

REPORT INFORMATION
  Report Type: Spontaneous
  Country: US (occurrence: US)
  Receive Date: 20140411
  Receipt Date: 20140411
  Transmission Date: 20141212
  Serious: No
  Sender: FDA-Public Use
  Company Number: US-SANOFI-AVENTIS-2013SA085350

PATIENT
  Age: 56 Year
  Sex: Male

DRUGS (3)
  1. ALLEGRA D [Suspect]
     Indication: SINUSITIS
     Dosage: TAKEN FROM:2 WEEKS AGO
     Route: 048
  2. METFORMIN [Concomitant]
  3. INSULIN [Concomitant]

REACTIONS (4)
  - Constipation [Not Recovered/Not Resolved]
  - Sneezing [Not Recovered/Not Resolved]
  - Rhinorrhoea [Not Recovered/Not Resolved]
  - Nasal congestion [Not Recovered/Not Resolved]
